FAERS Safety Report 21906934 (Version 2)
Quarter: 2023Q1

REPORT INFORMATION
  Report Type: Report from Study
  Country: CA (occurrence: CA)
  Receive Date: 20230125
  Receipt Date: 20230221
  Transmission Date: 20230418
  Serious: Yes (Other)
  Sender: FDA-Public Use
  Company Number: CA-JNJFOC-20230133725

PATIENT
  Age: 11 Year
  Sex: Female
  Weight: 30 kg

DRUGS (3)
  1. REMICADE [Suspect]
     Active Substance: INFLIXIMAB
     Indication: Crohn^s disease
     Route: 042
     Dates: start: 20221122
  2. REMICADE [Suspect]
     Active Substance: INFLIXIMAB
     Dosage: 6 WEEKS POST INDUCTION WEEK 6 RECEIVED ON 04-JAN-2023
     Route: 042
  3. REMICADE [Suspect]
     Active Substance: INFLIXIMAB
     Route: 042

REACTIONS (3)
  - Haematochezia [Unknown]
  - Drug level decreased [Unknown]
  - Off label use [Unknown]
